FAERS Safety Report 18601941 (Version 1)
Quarter: 2020Q4

REPORT INFORMATION
  Report Type: Spontaneous
  Country: GR (occurrence: GR)
  Receive Date: 20201210
  Receipt Date: 20201210
  Transmission Date: 20210114
  Serious: Yes (Other)
  Sender: FDA-Public Use
  Company Number: GR-MYLANLABS-2020M1100795

PATIENT
  Age: 66 Year
  Sex: Male

DRUGS (6)
  1. ATORVASTATIN [Suspect]
     Active Substance: ATORVASTATIN
     Indication: CORONARY ARTERY DISEASE
     Dosage: 20 MILLIGRAM, QD
     Route: 048
     Dates: start: 20190515, end: 20190516
  2. ATORVASTATIN [Suspect]
     Active Substance: ATORVASTATIN
     Indication: ANGIOPLASTY
  3. ROSUVASTATIN. [Suspect]
     Active Substance: ROSUVASTATIN
     Indication: CORONARY ARTERY DISEASE
  4. PRAVASTATIN. [Suspect]
     Active Substance: PRAVASTATIN
     Indication: ANGIOPLASTY
  5. ROSUVASTATIN. [Suspect]
     Active Substance: ROSUVASTATIN
     Indication: ANGIOPLASTY
     Dosage: 20 MILLIGRAM, QD
     Route: 048
     Dates: start: 20181010, end: 20190222
  6. PRAVASTATIN. [Suspect]
     Active Substance: PRAVASTATIN
     Indication: CORONARY ARTERY DISEASE
     Dosage: 20 MILLIGRAM, QD
     Route: 048
     Dates: start: 20190415, end: 20190514

REACTIONS (2)
  - Myalgia [Recovered/Resolved]
  - Gait inability [Recovered/Resolved]
